FAERS Safety Report 7178628-8 (Version None)
Quarter: 2010Q4

REPORT INFORMATION
  Report Type: 
  Country: None (occurrence: None)
  Receive Date: 20101221
  Receipt Date: 20101209
  Transmission Date: 20110411
  Serious: No
  Sender: FDA-Public Use
  Company Number: US-BIOGENIDEC-2010BI043509

PATIENT
  Sex: Male

DRUGS (3)
  1. TYSABRI [Suspect]
     Indication: MULTIPLE SCLEROSIS
     Route: 042
     Dates: start: 20101129
  2. TYSABRI [Suspect]
     Route: 042
     Dates: start: 20090311, end: 20090410
  3. AVONEX [Concomitant]
     Indication: MULTIPLE SCLEROSIS
     Route: 030

REACTIONS (5)
  - BURNING SENSATION [None]
  - FEELING COLD [None]
  - NEURITIS [None]
  - PAIN IN EXTREMITY [None]
  - PARAESTHESIA [None]
